FAERS Safety Report 5891256-7 (Version None)
Quarter: 2008Q3

REPORT INFORMATION
  Report Type: 
  Country: None (occurrence: None)
  Receive Date: 20080922
  Receipt Date: 20080828
  Transmission Date: 20090109
  Serious: No
  Sender: FDA-Public Use
  Company Number: US-BAYER-200832493NA

PATIENT
  Sex: Female

DRUGS (1)
  1. YAZ [Suspect]
     Indication: DRUG USE FOR UNKNOWN INDICATION
     Route: 048
     Dates: start: 20080814, end: 20080826

REACTIONS (5)
  - ERYTHEMA [None]
  - METRORRHAGIA [None]
  - NO ADVERSE EVENT [None]
  - PRURITUS [None]
  - RASH [None]
